FAERS Safety Report 19026039 (Version 1)
Quarter: 2021Q1

REPORT INFORMATION
  Report Type: Spontaneous
  Country: US (occurrence: US)
  Receive Date: 20210318
  Receipt Date: 20210318
  Transmission Date: 20210420
  Serious: No
  Sender: FDA-Public Use
  Company Number: None

PATIENT
  Age: 29 Year
  Sex: Female
  Weight: 70.31 kg

DRUGS (1)
  1. PARAGARD T 380A [Suspect]
     Active Substance: COPPER
     Dates: start: 20150825, end: 20210301

REACTIONS (4)
  - Device dislocation [None]
  - Device breakage [None]
  - Menorrhagia [None]
  - Vaginal haemorrhage [None]

NARRATIVE: CASE EVENT DATE: 20210305
